FAERS Safety Report 15114727 (Version 1)
Quarter: 2018Q2

REPORT INFORMATION
  Report Type: Spontaneous
  Country: US (occurrence: US)
  Receive Date: 20180612
  Receipt Date: 20180612
  Transmission Date: 20180711
  Serious: Yes (Disabling)
  Sender: FDA-Public Use
  Company Number: None

PATIENT
  Age: 64 Year
  Sex: Female
  Weight: 74.39 kg

DRUGS (5)
  1. NATURAL OILS [Concomitant]
  2. PROPOFOL. [Suspect]
     Active Substance: PROPOFOL
     Route: 042
     Dates: start: 20180503, end: 20180503
  3. MULTI VITAMINS [Concomitant]
     Active Substance: VITAMINS
  4. DOTERA VITAMINS [Concomitant]
  5. CALCIUM [Concomitant]
     Active Substance: CALCIUM

REACTIONS (1)
  - Aphonia [None]

NARRATIVE: CASE EVENT DATE: 20180503
